FAERS Safety Report 7588828-0 (Version None)
Quarter: 2011Q3

REPORT INFORMATION
  Report Type: 
  Country: None (occurrence: None)
  Receive Date: 20110705
  Receipt Date: 20110628
  Transmission Date: 20111222
  Serious: No
  Sender: FDA-Public Use
  Company Number: TR-JNJFOC-20110612250

PATIENT
  Age: 72 Year
  Sex: Male

DRUGS (1)
  1. FENTANYL [Suspect]
     Indication: CANCER PAIN
     Route: 062
     Dates: start: 20110601

REACTIONS (2)
  - INCORRECT DRUG ADMINISTRATION RATE [None]
  - DRUG EFFECT DECREASED [None]
